FAERS Safety Report 24190254 (Version 1)
Quarter: 2024Q3

REPORT INFORMATION
  Report Type: Spontaneous
  Country: GB (occurrence: GB)
  Receive Date: 20240808
  Receipt Date: 20240808
  Transmission Date: 20241017
  Serious: Yes (Life-Threatening, Hospitalization, Other)
  Sender: DR REDDYS
  Company Number: None

PATIENT
  Age: 60 Year
  Sex: Male
  Weight: 68 kg

DRUGS (4)
  1. OLANZAPINE [Suspect]
     Active Substance: OLANZAPINE
     Indication: Hypomania
     Dosage: 15 MG REDUCED TO 10 MG DAILY AT NIGHT?DAILY DOSE: 15 MILLIGRAM
     Dates: start: 20240531
  2. OLANZAPINE [Suspect]
     Active Substance: OLANZAPINE
     Dosage: 15 MG REDUCED TO 10 MG DAILY AT NIGHT
  3. LITHIUM [Suspect]
     Active Substance: LITHIUM
     Indication: Hypomania
     Dosage: 800 MG DAILY AT NIGHT?DAILY DOSE: 800 MILLIGRAM
     Dates: start: 20240531
  4. LITHIUM [Suspect]
     Active Substance: LITHIUM
     Dosage: 800 MG DAILY AT NIGHT?DAILY DOSE: 800 MILLIGRAM
     Dates: start: 20240531

REACTIONS (3)
  - Hypertension [Not Recovered/Not Resolved]
  - Heart rate increased [Unknown]
  - Mental disorder [Unknown]

NARRATIVE: CASE EVENT DATE: 20240715
